FAERS Safety Report 8809791 (Version 1)
Quarter: 2012Q4

REPORT INFORMATION
  Report Type: 
  Country: NL (occurrence: NL)
  Receive Date: 20120926
  Receipt Date: 20120926
  Transmission Date: 20130627
  Serious: Yes (Other)
  Sender: FDA-Public Use
  Company Number: NL-TEVA-360547ISR

PATIENT
  Age: 4 None
  Sex: Female

DRUGS (1)
  1. METRONIDAZOLE [Suspect]
     Dosage: 500 Milligram Daily;
     Route: 065

REACTIONS (2)
  - Pharyngitis [Unknown]
  - Tongue discolouration [Unknown]
